FAERS Safety Report 20070739 (Version 1)
Quarter: 2021Q4

REPORT INFORMATION
  Report Type: Spontaneous
  Country: US (occurrence: None)
  Receive Date: 20211115
  Receipt Date: 20211115
  Transmission Date: 20220304
  Serious: Yes (Other)
  Sender: FDA-Public Use
  Company Number: None

PATIENT
  Age: 50 Year
  Sex: Female
  Weight: 59.9 kg

DRUGS (1)
  1. REGEN-COV [Suspect]
     Active Substance: CASIRIVIMAB\IMDEVIMAB
     Indication: COVID-19
     Dosage: FREQUENCY : ONCE;?
     Route: 042
     Dates: start: 20211115, end: 20211115

REACTIONS (11)
  - Malaise [None]
  - Feeling abnormal [None]
  - Infusion related reaction [None]
  - Oxygen saturation decreased [None]
  - Flushing [None]
  - Dizziness [None]
  - Presyncope [None]
  - Vomiting [None]
  - Tremor [None]
  - Paraesthesia [None]
  - Pruritus [None]

NARRATIVE: CASE EVENT DATE: 20211115
